FAERS Safety Report 7311105-X (Version None)
Quarter: 2011Q1

REPORT INFORMATION
  Report Type: 
  Country: None (occurrence: None)
  Receive Date: 20110224
  Receipt Date: 20110215
  Transmission Date: 20110831
  Serious: Yes (Hospitalization)
  Sender: FDA-Public Use
  Company Number: JP-B.I. PHARMACEUTICALS,INC./RIDGEFIELD-2011-BP-01588NB

PATIENT
  Age: 85 Year
  Sex: Female

DRUGS (10)
  1. LOCHOL [Concomitant]
     Route: 048
  2. ARICEPT [Suspect]
     Dosage: 5 MG
     Route: 048
     Dates: end: 20110126
  3. TIALAREAD [Concomitant]
     Route: 048
  4. MAINTOWA [Concomitant]
     Route: 048
  5. BROTIZOLAM [Concomitant]
     Route: 048
  6. TIAPRIM [Concomitant]
     Route: 048
  7. MICARDIS [Suspect]
     Dosage: 20 MG
     Route: 048
  8. GASTER [Concomitant]
     Route: 048
  9. YOKU-KAN-SAN [Concomitant]
     Route: 048
  10. PRELAZINE [Concomitant]
     Route: 048

REACTIONS (2)
  - LOSS OF CONSCIOUSNESS [None]
  - SYNCOPE [None]
